FAERS Safety Report 18566306 (Version 2)
Quarter: 2020Q4

REPORT INFORMATION
  Report Type: Spontaneous
  Country: AT (occurrence: AT)
  Receive Date: 20201201
  Receipt Date: 20201209
  Transmission Date: 20210114
  Serious: No
  Sender: FDA-Public Use
  Company Number: AT-PFIZER INC-2020467119

PATIENT
  Age: 3 Decade
  Sex: Male

DRUGS (7)
  1. ENDOXAN-BAXTER [Suspect]
     Active Substance: CYCLOPHOSPHAMIDE
     Indication: DIFFUSE LARGE B-CELL LYMPHOMA STAGE I
     Dosage: UNK UNK, CYCLIC (6 CYCLES ADMINISTERED IN TOTALR2-CHOP THERAPY)
     Route: 065
  2. DOXORUBICIN HCL [Suspect]
     Active Substance: DOXORUBICIN HYDROCHLORIDE
     Indication: DIFFUSE LARGE B-CELL LYMPHOMA STAGE I
     Dosage: UNK UNK, CYCLIC (6 CYCLES ADMINISTERED IN TOTALR2-CHOP THERAPY)
     Route: 065
  3. VINCRISTINE [Suspect]
     Active Substance: VINCRISTINE
     Indication: DIFFUSE LARGE B-CELL LYMPHOMA STAGE I
     Dosage: UNK UNK, CYCLIC (6 CYCLES ADMINISTERED IN TOTALR2-CHOP THERAPY)
     Route: 065
  4. RITUXIMAB. [Suspect]
     Active Substance: RITUXIMAB
     Indication: DIFFUSE LARGE B-CELL LYMPHOMA STAGE I
     Dosage: UNK UNK, CYCLIC (6 CYCLES ADMINISTERED IN TOTALR2-CHOP THERAPY)
     Route: 065
  5. PREDNISONE. [Suspect]
     Active Substance: PREDNISONE
     Indication: DIFFUSE LARGE B-CELL LYMPHOMA STAGE I
     Dosage: UNK UNK, CYCLIC (6 CYCLES ADMINISTERED IN TOTALR2-CHOP THERAPY)
     Route: 065
  6. METHOTREXATE SODIUM. [Suspect]
     Active Substance: METHOTREXATE SODIUM
     Indication: DIFFUSE LARGE B-CELL LYMPHOMA
     Dosage: UNK UNK, CYCLIC (2 CYCLES ADMINISTERED (HIGH DOSE))
     Route: 065
  7. LENALIDOMIDE [Suspect]
     Active Substance: LENALIDOMIDE
     Indication: DIFFUSE LARGE B-CELL LYMPHOMA STAGE I
     Dosage: UNK UNK, CYCLIC (6 CYCLES ADMINISTERED IN TOTALR2-CHOP THERAPY)
     Route: 065

REACTIONS (1)
  - Neoplasm progression [Unknown]
